FAERS Safety Report 20911939 (Version 1)
Quarter: 2022Q2

REPORT INFORMATION
  Report Type: Spontaneous
  Country: JP (occurrence: JP)
  Receive Date: 20220603
  Receipt Date: 20220603
  Transmission Date: 20220721
  Serious: Yes (Other)
  Sender: FDA-Public Use
  Company Number: None

PATIENT
  Age: 13 Year
  Sex: Male

DRUGS (9)
  1. ALENDRONATE [Suspect]
     Active Substance: ALENDRONATE SODIUM
     Indication: Prophylaxis
     Dosage: ORAL ALENDRONATE THERAPY (35 MG/ WEEK) AND ALENDRONATE WEEKLY FOR 3 YEAR. ALENDRONATE WAS DISCONTINU
     Route: 048
  2. ALENDRONATE [Suspect]
     Active Substance: ALENDRONATE SODIUM
     Indication: Fracture
  3. ALENDRONATE [Suspect]
     Active Substance: ALENDRONATE SODIUM
     Indication: Drug therapy
  4. PREDNISOLONE [Suspect]
     Active Substance: PREDNISOLONE
     Indication: Glomerulonephritis membranoproliferative
     Dosage: 20 MILLIGRAM, QOD
     Route: 048
  5. PREDNISOLONE [Suspect]
     Active Substance: PREDNISOLONE
     Dosage: 40 MILLIGRAM, QOD
     Route: 048
  6. MYCOPHENOLATE MOFETIL [Suspect]
     Active Substance: MYCOPHENOLATE MOFETIL
     Indication: Glomerulonephritis membranoproliferative
     Dosage: DOSE (1000 MG/DAY)
     Route: 065
  7. METHYLPREDNISOLONE [Suspect]
     Active Substance: METHYLPREDNISOLONE
     Indication: Glomerulonephritis membranoproliferative
     Dosage: (1 MG/KG FOR 3 CONSECUTIVE DAYS ONCE A WEEK, THREE COURSES)
     Route: 042
  8. MIZORIBINE [Suspect]
     Active Substance: MIZORIBINE
     Indication: Glomerulonephritis membranoproliferative
     Dosage: 200 MILLIGRAM, QD
     Route: 065
  9. MIZORIBINE [Suspect]
     Active Substance: MIZORIBINE
     Dosage: 300 MILLIGRAM, QD
     Route: 065

REACTIONS (7)
  - Fracture [Recovered/Resolved]
  - Osteosclerosis [Recovering/Resolving]
  - Osteochondrosis [Unknown]
  - Spondylolysis [Recovering/Resolving]
  - Spinal osteoarthritis [Recovering/Resolving]
  - Drug ineffective for unapproved indication [Unknown]
  - Off label use [Unknown]
